FAERS Safety Report 8552059-8 (Version None)
Quarter: 2012Q3

REPORT INFORMATION
  Report Type: 
  Country: None (occurrence: None)
  Receive Date: 20120731
  Receipt Date: 20120716
  Transmission Date: 20120928
  Serious: Yes (Hospitalization)
  Sender: FDA-Public Use
  Company Number: SE-AMGEN-QUU411005

PATIENT
  Age: 66 Year
  Sex: Female

DRUGS (6)
  1. LASIX R [Concomitant]
     Dosage: UNK UNK, UNK
  2. REMICADE [Suspect]
     Indication: RHEUMATOID ARTHRITIS
     Dosage: 100 MG, UNK
     Route: 042
     Dates: start: 20020101, end: 20070101
  3. AZATHIOPRINE [Suspect]
     Indication: RHEUMATOID ARTHRITIS
     Dosage: 50 MG, UNK
     Route: 048
     Dates: end: 20091201
  4. ETANERCEPT [Suspect]
     Indication: RHEUMATOID ARTHRITIS
     Dosage: 25 MG, UNK
     Route: 058
     Dates: start: 20070101, end: 20091201
  5. FELODIPINE [Concomitant]
     Dosage: UNK
  6. ORUDIS [Concomitant]
     Dosage: UNK UNK, UNK

REACTIONS (1)
  - UTERINE CANCER [None]
